FAERS Safety Report 5486436-9 (Version None)
Quarter: 2007Q3

REPORT INFORMATION
  Report Type: 
  Country: None (occurrence: None)
  Receive Date: 20070919
  Receipt Date: 20070717
  Transmission Date: 20080115
  Serious: No
  Sender: FDA-Public Use
  Company Number: 2007RL000331

PATIENT
  Age: 77 Year
  Sex: Female

DRUGS (2)
  1. OMACOR [Suspect]
     Indication: BLOOD CHOLESTEROL INCREASED
     Dosage: 4 GM; QAM; PO
     Route: 048
     Dates: start: 20070101, end: 20070517
  2. XALATAN [Concomitant]

REACTIONS (7)
  - EYE IRRITATION [None]
  - FOREIGN BODY SENSATION IN EYES [None]
  - OCULAR HYPERAEMIA [None]
  - OFF LABEL USE [None]
  - PHOTOPHOBIA [None]
  - THERAPEUTIC RESPONSE UNEXPECTED [None]
  - TREATMENT NONCOMPLIANCE [None]
